FAERS Safety Report 4909973-1 (Version None)
Quarter: 2006Q1

REPORT INFORMATION
  Report Type: 
  Country: None (occurrence: None)
  Receive Date: 20060213
  Receipt Date: 20060210
  Transmission Date: 20060701
  Serious: Yes (Hospitalization)
  Sender: FDA-Public Use
  Company Number: US-GLAXOSMITHKLINE-A0593168A

PATIENT
  Age: 47 Year
  Sex: Male

DRUGS (2)
  1. COMMIT [Suspect]
     Dosage: 2MG UNKNOWN
     Dates: start: 20060101, end: 20060109
  2. PROTONIX [Concomitant]

REACTIONS (8)
  - CARDIAC ENZYMES INCREASED [None]
  - CHEST PAIN [None]
  - DIZZINESS [None]
  - HYPOAESTHESIA [None]
  - MALAISE [None]
  - MYOCARDIAL INFARCTION [None]
  - NAUSEA [None]
  - PAIN IN JAW [None]
